FAERS Safety Report 5626895-1 (Version None)
Quarter: 2008Q1

REPORT INFORMATION
  Report Type: 
  Country: None (occurrence: None)
  Receive Date: 20080212
  Receipt Date: 20080130
  Transmission Date: 20080703
  Serious: Yes (Other)
  Sender: FDA-Public Use
  Company Number: GXKR2008GB01297

PATIENT
  Sex: Male

DRUGS (1)
  1. ITRACONAZOLE SANDOZ (NGX)(ITRACONAZOLE) UNKNOWN [Suspect]
     Indication: ONYCHOMYCOSIS

REACTIONS (2)
  - HYPERGLYCAEMIA [None]
  - TYPE 2 DIABETES MELLITUS [None]
